FAERS Safety Report 25511015 (Version 1)
Quarter: 2025Q3

REPORT INFORMATION
  Report Type: Spontaneous
  Country: US (occurrence: US)
  Receive Date: 20250703
  Receipt Date: 20250703
  Transmission Date: 20251020
  Serious: No
  Sender: RADIUS PHARM
  Company Number: US-RADIUS HEALTH INC.-2024US006264

PATIENT
  Age: 58 Year
  Sex: Female
  Weight: 59.41 kg

DRUGS (10)
  1. TYMLOS [Suspect]
     Active Substance: ABALOPARATIDE
     Indication: Senile osteoporosis
     Route: 058
     Dates: start: 20240727
  2. TYMLOS [Suspect]
     Active Substance: ABALOPARATIDE
     Route: 058
     Dates: start: 20240929
  3. TYMLOS [Suspect]
     Active Substance: ABALOPARATIDE
     Route: 058
  4. ATORVASTATIN CALCIUM [Concomitant]
     Active Substance: ATORVASTATIN CALCIUM
     Indication: Product used for unknown indication
  5. AUGMENTIN [Concomitant]
     Active Substance: AMOXICILLIN\CLAVULANATE POTASSIUM
     Indication: Product used for unknown indication
  6. VITAMIN D3 [Concomitant]
     Active Substance: CHOLECALCIFEROL
     Indication: Product used for unknown indication
  7. NOVOLOG [Concomitant]
     Active Substance: INSULIN ASPART
  8. LEVOTHYROXINE SODIUM [Concomitant]
     Active Substance: LEVOTHYROXINE SODIUM
     Indication: Product used for unknown indication
  9. METFORMIN HYDROCHLORIDE [Concomitant]
     Active Substance: METFORMIN HYDROCHLORIDE
     Indication: Product used for unknown indication
  10. INSULIN GLARGINE-YFGN [Concomitant]
     Active Substance: INSULIN GLARGINE-YFGN
     Indication: Product used for unknown indication

REACTIONS (8)
  - Diarrhoea [Recovering/Resolving]
  - Bone pain [Recovered/Resolved]
  - Heart rate increased [Not Recovered/Not Resolved]
  - Pollakiuria [Not Recovered/Not Resolved]
  - Sinusitis [Not Recovered/Not Resolved]
  - Therapy interrupted [Unknown]
  - Arthralgia [Unknown]
  - Blood calcium increased [Unknown]

NARRATIVE: CASE EVENT DATE: 20240801
